FAERS Safety Report 17398239 (Version 2)
Quarter: 2020Q1

REPORT INFORMATION
  Report Type: Report from Study
  Country: US (occurrence: US)
  Receive Date: 20200210
  Receipt Date: 20200320
  Transmission Date: 20200409
  Serious: No
  Sender: FDA-Public Use
  Company Number: NVSC2020US034544

PATIENT
  Age: 50 Year
  Sex: Female

DRUGS (1)
  1. COSENTYX [Suspect]
     Active Substance: SECUKINUMAB
     Indication: PSORIASIS
     Dosage: 300 MG, QW
     Route: 058
     Dates: start: 20200129

REACTIONS (6)
  - Headache [Unknown]
  - Chest discomfort [Unknown]
  - Malaise [Unknown]
  - Nasopharyngitis [Unknown]
  - Influenza [Unknown]
  - Anxiety [Unknown]

NARRATIVE: CASE EVENT DATE: 20200203
